FAERS Safety Report 4956742-2 (Version None)
Quarter: 2006Q1

REPORT INFORMATION
  Report Type: 
  Country: None (occurrence: None)
  Receive Date: 20060329
  Receipt Date: 20060327
  Transmission Date: 20060701
  Serious: Yes (Other)
  Sender: FDA-Public Use
  Company Number: GB-ROCHE-441958

PATIENT
  Age: 46 Year
  Sex: Male

DRUGS (2)
  1. RIBAVIRIN [Suspect]
     Indication: HEPATITIS C VIRUS
     Route: 048
  2. INTRON A [Suspect]
     Indication: HEPATITIS C VIRUS
     Route: 065

REACTIONS (2)
  - HYPERTENSION [None]
  - RETINOPATHY [None]
